FAERS Safety Report 19765951 (Version 1)
Quarter: 2021Q3

REPORT INFORMATION
  Report Type: Spontaneous
  Country: CA (occurrence: CA)
  Receive Date: 20210831
  Receipt Date: 20210831
  Transmission Date: 20211014
  Serious: Yes (Life-Threatening, Hospitalization, Other)
  Sender: FDA-Public Use
  Company Number: CA-TEVA-2021-CA-1947053

PATIENT
  Age: 71 Year
  Sex: Male
  Weight: 62 kg

DRUGS (20)
  1. POTASSIUM CHLORIDE. [Concomitant]
     Active Substance: POTASSIUM CHLORIDE
  2. ELIQUIS [Concomitant]
     Active Substance: APIXABAN
  3. MAGNESIUM OXIDE. [Concomitant]
     Active Substance: MAGNESIUM OXIDE
  4. SENNOSIDES. [Concomitant]
     Active Substance: SENNOSIDES
  5. TWOCAL HN (WHODD 07460101) [Concomitant]
     Active Substance: DIETARY SUPPLEMENT
  6. ZOPICLONE [Concomitant]
     Active Substance: ZOPICLONE
  7. AMLODIPINE [Concomitant]
     Active Substance: AMLODIPINE BESYLATE
  8. DIMENHYDRINATE. [Concomitant]
     Active Substance: DIMENHYDRINATE
  9. ACETAMINOPHEN. [Concomitant]
     Active Substance: ACETAMINOPHEN
  10. CHOLECALCIFEROL [Concomitant]
     Active Substance: CHOLECALCIFEROL
  11. FILGRASTIM [Concomitant]
     Active Substance: FILGRASTIM
  12. ONDANSETRON [Concomitant]
     Active Substance: ONDANSETRON
  13. POLYETHYLENE GLYCOL [Concomitant]
     Active Substance: POLYETHYLENE GLYCOLS
  14. LOPERAMIDE [Concomitant]
     Active Substance: LOPERAMIDE
  15. LORAZEPAM. [Concomitant]
     Active Substance: LORAZEPAM
  16. PANTOPRAZOLE [Concomitant]
     Active Substance: PANTOPRAZOLE
  17. ETOPOSIDE INJECTION, USP [Suspect]
     Active Substance: ETOPOSIDE
     Indication: DIFFUSE LARGE B-CELL LYMPHOMA
     Dosage: 516 MILLIGRAM DAILY;
     Route: 042
  18. ACETAMINOPHEN/CAFFEI NE/CODEINE PHOSPHATE [Concomitant]
  19. METOCLOPRAMIDE. [Concomitant]
     Active Substance: METOCLOPRAMIDE
  20. HYDROMORPHONE [Concomitant]
     Active Substance: HYDROMORPHONE

REACTIONS (6)
  - Thrombocytopenia [Recovered/Resolved]
  - Pneumonia klebsiella [Recovered/Resolved]
  - Febrile neutropenia [Recovered/Resolved]
  - Pneumonia [Recovered/Resolved]
  - Anaemia [Recovered/Resolved]
  - Urinary tract infection [Recovered/Resolved]
